FAERS Safety Report 4399710-4 (Version None)
Quarter: 2004Q2

REPORT INFORMATION
  Report Type: 
  Country: None (occurrence: None)
  Receive Date: 20040608
  Receipt Date: 20040407
  Transmission Date: 20050107
  Serious: No
  Sender: FDA-Public Use
  Company Number: FROV000186

PATIENT
  Age: 40 Year
  Sex: Female

DRUGS (4)
  1. FROVA [Suspect]
     Indication: MIGRAINE
     Dosage: 5 MG; ORAL
     Route: 048
     Dates: start: 20040407
  2. IMITREX ^CERENEX^ (SUMATRIPTAN) [Concomitant]
  3. PAXIL [Concomitant]
  4. LEXAPRO [Concomitant]

REACTIONS (1)
  - MIGRAINE [None]
